FAERS Safety Report 10710850 (Version 1)
Quarter: 2015Q1

REPORT INFORMATION
  Report Type: Spontaneous
  Country: GB (occurrence: None)
  Receive Date: 20150112
  Receipt Date: 20150112
  Transmission Date: 20150721
  Serious: Yes (Death)
  Sender: FDA-Public Use
  Company Number: AMAG201400505

PATIENT

DRUGS (2)
  1. RIENSO (FERUMOXYTOL) INJECTION [Suspect]
     Active Substance: FERUMOXYTOL
     Indication: IMAGING PROCEDURE
     Dosage: SINGLE
     Route: 042
     Dates: start: 20140408, end: 20140408
  2. BUSCOPAN (HYOSCINE BUTYLBROMIDE) (HYOSCINE BUTYLBROMIDE) [Concomitant]
     Active Substance: BUTYLSCOPOLAMINE

REACTIONS (2)
  - No therapeutic response [None]
  - Aortic aneurysm rupture [None]

NARRATIVE: CASE EVENT DATE: 20141224
